FAERS Safety Report 16254168 (Version 2)
Quarter: 2019Q2

REPORT INFORMATION
  Report Type: Report from Study
  Country: None (occurrence: FR)
  Receive Date: 20190430
  Receipt Date: 20190507
  Transmission Date: 20190711
  Serious: Yes (Hospitalization)
  Sender: FDA-Public Use
  Company Number: FR-ABBVIE-19S-056-2761290-00

PATIENT
  Sex: Male

DRUGS (2)
  1. DUODOPA [Suspect]
     Active Substance: CARBIDOPA\LEVODOPA
     Indication: PRODUCT USED FOR UNKNOWN INDICATION
     Dosage: DRUG DISCONTINUED
     Route: 050
     Dates: start: 20190220, end: 2019
  2. ANTIBIOTICS TREATMENT [Concomitant]
     Indication: PRODUCT USED FOR UNKNOWN INDICATION

REACTIONS (4)
  - Constipation [Unknown]
  - Abdominal pain [Not Recovered/Not Resolved]
  - Gastrointestinal inflammation [Unknown]
  - Device dislocation [Unknown]

NARRATIVE: CASE EVENT DATE: 2019
